FAERS Safety Report 23983033 (Version 1)
Quarter: 2024Q2

REPORT INFORMATION
  Report Type: Spontaneous
  Country: DE (occurrence: DE)
  Receive Date: 20240617
  Receipt Date: 20240617
  Transmission Date: 20240716
  Serious: Yes (Death, Life-Threatening, Hospitalization, Other)
  Sender: FDA-Public Use
  Company Number: DE-002147023-PHHY2009DE31021

PATIENT
  Age: 68 Year
  Sex: Female
  Weight: 53 kg

DRUGS (44)
  1. CARBIDOPA\LEVODOPA [Suspect]
     Active Substance: CARBIDOPA\LEVODOPA
     Indication: Product used for unknown indication
     Dosage: 200 MG, QD
     Route: 048
  2. CARBIDOPA\LEVODOPA [Suspect]
     Active Substance: CARBIDOPA\LEVODOPA
     Dosage: 93.75 MG, QD
     Route: 048
  3. CLOZAPINE [Suspect]
     Active Substance: CLOZAPINE
     Indication: Product used for unknown indication
     Dosage: 0.5 DF, Q3W (0.5 TABLET AT 7+9+12+14+19 O^CLOCK)
     Route: 048
  4. CLOZAPINE [Suspect]
     Active Substance: CLOZAPINE
     Dosage: 225 MG, QD
     Route: 048
     Dates: start: 20090111
  5. CLOZAPINE [Suspect]
     Active Substance: CLOZAPINE
     Dosage: 25 MG, QD
     Route: 048
  6. CLOZAPINE [Suspect]
     Active Substance: CLOZAPINE
     Dosage: 62.5 MG, QD
     Route: 048
  7. CARBIDOPA [Suspect]
     Active Substance: CARBIDOPA
     Indication: Product used for unknown indication
     Dosage: 200 MG, QD
     Route: 048
  8. CARBIDOPA [Suspect]
     Active Substance: CARBIDOPA
     Dosage: 3 MG, Q12H
     Route: 065
  9. CARBIDOPA [Suspect]
     Active Substance: CARBIDOPA
     Dosage: 3 MG, Q12H
     Route: 065
  10. DOMPERIDONE [Suspect]
     Active Substance: DOMPERIDONE
     Indication: Product used for unknown indication
     Dosage: 10 MG, BID
     Route: 048
  11. DOMPERIDONE [Suspect]
     Active Substance: DOMPERIDONE
     Dosage: 20 MG, QD
     Route: 048
  12. CLOMETHIAZOLE [Suspect]
     Active Substance: CLOMETHIAZOLE
     Dosage: 1 OT, QD
     Route: 065
  13. CLOMETHIAZOLE [Suspect]
     Active Substance: CLOMETHIAZOLE
     Dosage: 1 OT, UNK
     Route: 065
  14. CLOMETHIAZOLE [Suspect]
     Active Substance: CLOMETHIAZOLE
     Indication: Product used for unknown indication
     Dosage: UNK, PRN
     Route: 048
     Dates: start: 2009
  15. EXELON [Suspect]
     Active Substance: RIVASTIGMINE TARTRATE
     Indication: Product used for unknown indication
     Dosage: 3 MG, BID
     Route: 065
  16. LEVODOPA [Suspect]
     Active Substance: LEVODOPA
     Dosage: 1 MG, QD
     Route: 048
  17. LEVODOPA [Suspect]
     Active Substance: LEVODOPA
     Dosage: 3 MG, Q12H
     Route: 065
  18. LEVODOPA [Suspect]
     Active Substance: LEVODOPA
     Indication: Premedication
     Dosage: 93.75 MG, QD
     Route: 048
  19. OMEPRAZOLE [Suspect]
     Active Substance: DONEPEZIL HYDROCHLORIDE\OMEPRAZOLE\OMEPRAZOLE MAGNESIUM
     Indication: Product used for unknown indication
     Dosage: 80 MG, QD ALSO REPORTED AS 40 MG, BID
     Route: 065
  20. OMEPRAZOLE [Suspect]
     Active Substance: DONEPEZIL HYDROCHLORIDE\OMEPRAZOLE\OMEPRAZOLE MAGNESIUM
     Dosage: 80 MG, QD QD ALSO REPORTED AS 40 MG, BID
     Route: 065
  21. PIPAMPERONE [Suspect]
     Active Substance: PIPAMPERONE
     Indication: Product used for unknown indication
     Dosage: 40 MG, QD
     Route: 065
  22. RIVASTIGMINE [Suspect]
     Active Substance: RIVASTIGMINE
     Dosage: 1 MG, QD 3-1.5-1.5
     Route: 048
  23. RIVASTIGMINE [Suspect]
     Active Substance: RIVASTIGMINE
     Indication: Parkinson^s disease
     Dosage: 6 MG, QD (3 MG,BID)
     Route: 048
  24. STALEVO [Suspect]
     Active Substance: CARBIDOPA\ENTACAPONE\LEVODOPA
     Dosage: 100 MG, QD
     Route: 048
  25. STALEVO [Suspect]
     Active Substance: CARBIDOPA\ENTACAPONE\LEVODOPA
     Dosage: 250 MG, QD
     Route: 048
     Dates: start: 20090111
  26. STALEVO [Suspect]
     Active Substance: CARBIDOPA\ENTACAPONE\LEVODOPA
     Indication: Product used for unknown indication
     Dosage: 50 MG, TID
     Route: 048
  27. STALEVO [Suspect]
     Active Substance: CARBIDOPA\ENTACAPONE\LEVODOPA
     Dosage: 6 DF, QD
     Route: 048
  28. STALEVO [Suspect]
     Active Substance: CARBIDOPA\ENTACAPONE\LEVODOPA
     Dosage: 600 MG, QD
     Route: 048
  29. VALPROATE [Suspect]
     Active Substance: VALPROIC ACID
     Dosage: 300 MG, QD
     Route: 048
  30. VALPROATE [Suspect]
     Active Substance: VALPROIC ACID
     Indication: Product used for unknown indication
     Dosage: 600 MG, QD
     Route: 048
  31. VALPROIC ACID [Suspect]
     Active Substance: VALPROIC ACID
     Indication: Product used for unknown indication
     Route: 065
  32. VALPROIC ACID [Suspect]
     Active Substance: VALPROIC ACID
     Indication: Product used for unknown indication
     Route: 065
  33. VALPROIC ACID [Concomitant]
     Active Substance: VALPROIC ACID
     Indication: Product used for unknown indication
     Dosage: 300 MG, QD
     Route: 065
     Dates: start: 20090111
  34. VALPROIC ACID [Concomitant]
     Active Substance: VALPROIC ACID
     Dosage: 600 MG, QD
     Route: 065
  35. CARBIDOPA\LEVODOPA [Concomitant]
     Active Substance: CARBIDOPA\LEVODOPA
     Indication: Product used for unknown indication
     Dosage: 25 MG, QD
     Route: 065
  36. POTASSIUM CHLORIDE [Concomitant]
     Active Substance: POTASSIUM CHLORIDE
     Indication: Product used for unknown indication
     Dosage: UNK, QD
     Route: 065
  37. LACTULOSE [Concomitant]
     Active Substance: LACTULOSE
     Indication: Product used for unknown indication
     Dosage: 20 ML, QD
     Route: 065
  38. METOCLOPRAMIDE [Concomitant]
     Active Substance: METOCLOPRAMIDE
     Indication: Product used for unknown indication
     Dosage: UNK
     Route: 042
  39. MOVICOL [Concomitant]
     Active Substance: POLYETHYLENE GLYCOL 3350\POTASSIUM CHLORIDE\SODIUM BICARBONATE\SODIUM CHLORIDE
     Indication: Product used for unknown indication
     Dosage: 1 DF, QD
     Route: 065
  40. CARBIDOPA\LEVODOPA [Concomitant]
     Active Substance: CARBIDOPA\LEVODOPA
     Indication: Product used for unknown indication
     Dosage: 250 MG, QD
     Route: 065
  41. NEOSTIGMINE METHYLSULFATE [Concomitant]
     Active Substance: NEOSTIGMINE METHYLSULFATE
     Indication: Product used for unknown indication
     Dosage: UNK
     Route: 065
  42. METAMIZOLE [Concomitant]
     Active Substance: METAMIZOLE
     Dosage: 1 DF, UNK
     Route: 065
  43. METAMIZOLE [Concomitant]
     Active Substance: METAMIZOLE
     Indication: Product used for unknown indication
     Dosage: 20 GTT, QID
     Route: 065
  44. TRAMADOL [Concomitant]
     Active Substance: TRAMADOL\TRAMADOL HYDROCHLORIDE
     Indication: Product used for unknown indication
     Dosage: UNK
     Route: 042

REACTIONS (14)
  - Subileus [Fatal]
  - Pancreatitis [Fatal]
  - Ileus [Fatal]
  - Gastrointestinal sounds abnormal [Fatal]
  - Abdominal tenderness [Fatal]
  - Bladder disorder [Fatal]
  - Vascular encephalopathy [Fatal]
  - Abdominal distension [Fatal]
  - Nausea [Fatal]
  - White blood cell count increased [Fatal]
  - Abdominal pain [Fatal]
  - Faecaloma [Fatal]
  - Dementia [Fatal]
  - Vascular encephalopathy [Fatal]

NARRATIVE: CASE EVENT DATE: 20090109
